FAERS Safety Report 21310722 (Version 1)
Quarter: 2022Q3

REPORT INFORMATION
  Report Type: Spontaneous
  Country: GB (occurrence: GB)
  Receive Date: 20220909
  Receipt Date: 20220909
  Transmission Date: 20221026
  Serious: Yes (Death, Other)
  Sender: FDA-Public Use
  Company Number: GB-ASPEN-GLO2022GB005105

PATIENT

DRUGS (8)
  1. DEXAMETHASONE [Suspect]
     Active Substance: DEXAMETHASONE
     Indication: SARS-CoV-2 antibody test positive
     Dosage: UNK
     Route: 042
  2. DEXAMETHASONE [Suspect]
     Active Substance: DEXAMETHASONE
     Indication: Cystic fibrosis
  3. TOBRAMYCIN [Suspect]
     Active Substance: TOBRAMYCIN
     Indication: SARS-CoV-2 antibody test positive
     Dosage: UNK
     Route: 042
  4. TOBRAMYCIN [Suspect]
     Active Substance: TOBRAMYCIN
     Indication: Cystic fibrosis
  5. CEFTAZIDIME [Suspect]
     Active Substance: CEFTAZIDIME
     Indication: SARS-CoV-2 antibody test positive
     Dosage: UNK
     Route: 042
  6. CEFTAZIDIME [Suspect]
     Active Substance: CEFTAZIDIME
     Indication: Cystic fibrosis
  7. ELEXACAFTOR\IVACAFTOR\TEZACAFTOR [Concomitant]
     Active Substance: ELEXACAFTOR\IVACAFTOR\TEZACAFTOR
     Indication: SARS-CoV-2 antibody test positive
     Dosage: UNK
     Route: 065
  8. ELEXACAFTOR\IVACAFTOR\TEZACAFTOR [Concomitant]
     Active Substance: ELEXACAFTOR\IVACAFTOR\TEZACAFTOR
     Indication: Cystic fibrosis

REACTIONS (2)
  - Off label use [Fatal]
  - Nocardiosis [Fatal]
